FAERS Safety Report 6680113-4 (Version None)
Quarter: 2010Q2

REPORT INFORMATION
  Report Type: 
  Country: None (occurrence: None)
  Receive Date: 20100409
  Receipt Date: 20100401
  Transmission Date: 20101027
  Serious: Yes (Other)
  Sender: FDA-Public Use
  Company Number: SPV1-2008-01943

PATIENT
  Age: 74 Year
  Sex: Male

DRUGS (2)
  1. FOSRENOL [Suspect]
     Indication: HYPERPHOSPHATAEMIA
     Dosage: 500 MG, 1X1DAY:QD, ORAL
     Route: 048
     Dates: start: 20080815, end: 20080827
  2. INSULIN (INSULIN) [Concomitant]

REACTIONS (2)
  - DERMATITIS EXFOLIATIVE [None]
  - OEDEMA PERIPHERAL [None]
